FAERS Safety Report 21103020 (Version 1)
Quarter: 2022Q3

REPORT INFORMATION
  Report Type: Spontaneous
  Country: FR (occurrence: FR)
  Receive Date: 20220720
  Receipt Date: 20220720
  Transmission Date: 20221026
  Serious: Yes (Life-Threatening, Hospitalization)
  Sender: FDA-Public Use
  Company Number: None

PATIENT
  Age: 76 Year
  Sex: Male
  Weight: 83 kg

DRUGS (11)
  1. BISOPROLOL [Suspect]
     Active Substance: BISOPROLOL
     Indication: Hypertension
     Dosage: 1 MORNING AND EVENING, BISOPROLOL (HEMIFUMARATE DE) , UNIT DOSE : 5 MG  , FREQUENCY TIME : 1 DAY
  2. CALCIUM CARBONATE BYK FRANCE [Concomitant]
     Indication: Product used for unknown indication
     Dosage: 3 DOSAGE FORMS DAILY; 1 SACHET MORNING, NOON AND EVENING
  3. LACTULOSE [Concomitant]
     Active Substance: LACTULOSE
     Indication: Product used for unknown indication
     Dosage: IF NECESSARY
  4. ATORVASTATIN [Concomitant]
     Active Substance: ATORVASTATIN
     Indication: Product used for unknown indication
     Dosage: 2 IN THE EVENING , UNIT DOSE : 80 MG , FREQUENCY TIME : 1 DAY
  5. INSULIN GLARGINE [Concomitant]
     Active Substance: INSULIN GLARGINE
     Indication: Product used for unknown indication
     Dosage: INSULINE GLARGINE ((BACTERIE/ESCHERICHIA COLI))
  6. LANSOPRAZOLE [Concomitant]
     Active Substance: LANSOPRAZOLE
     Indication: Product used for unknown indication
     Dosage: 15 MILLIGRAM DAILY; 1 IN THE EVENING , UNIT DOSE : 15 MG , FREQUENCY TIME : 1 DAY
  7. ASPIRIN DL-LYSINE [Concomitant]
     Active Substance: ASPIRIN DL-LYSINE
     Indication: Product used for unknown indication
     Dosage: 75 MILLIGRAM DAILY; 1 IN THE MORNING
  8. FUROSEMIDE [Concomitant]
     Active Substance: FUROSEMIDE
     Indication: Product used for unknown indication
     Dosage: 500 MILLIGRAM DAILY; 1 IN THE MORNING
  9. INSULIN ASPART [Concomitant]
     Active Substance: INSULIN ASPART
     Indication: Product used for unknown indication
     Dosage: INSULINE ASPARTE ((LEVURE/SACCHAROMYCES CEREVISIAE))
  10. ALFUZOSIN HYDROCHLORIDE [Concomitant]
     Active Substance: ALFUZOSIN HYDROCHLORIDE
     Indication: Product used for unknown indication
     Dosage: 10 MILLIGRAM DAILY; (LP) 1 IN THE EVENING
  11. CLONAZEPAM [Concomitant]
     Active Substance: CLONAZEPAM
     Indication: Tremor
     Dosage: 14 GTT DAILY; 3 DROPS MORNING, NOON, EVENING AND 5 DROPS AT BEDTIME ,  UNIT DOSE : 14 GTT
     Dates: start: 201512

REACTIONS (1)
  - Bradycardia [Recovered/Resolved]

NARRATIVE: CASE EVENT DATE: 20210601
